FAERS Safety Report 13965379 (Version 1)
Quarter: 2017Q3

REPORT INFORMATION
  Report Type: Spontaneous
  Country: US (occurrence: US)
  Receive Date: 20170913
  Receipt Date: 20170913
  Transmission Date: 20171128
  Serious: No
  Sender: FDA-Public Use
  Company Number: US-VIVUS, INC.-2017V1000077

PATIENT
  Age: 35 Year
  Sex: Female
  Weight: 122.58 kg

DRUGS (1)
  1. QSYMIA [Suspect]
     Active Substance: PHENTERMINE HYDROCHLORIDE\TOPIRAMATE
     Indication: WEIGHT DECREASED
     Route: 048
     Dates: start: 20170316

REACTIONS (2)
  - Hypoaesthesia [Not Recovered/Not Resolved]
  - Food craving [Not Recovered/Not Resolved]

NARRATIVE: CASE EVENT DATE: 201703
